FAERS Safety Report 7202984-5 (Version None)
Quarter: 2010Q4

REPORT INFORMATION
  Report Type: 
  Country: None (occurrence: None)
  Receive Date: 20101229
  Receipt Date: 20101223
  Transmission Date: 20110411
  Serious: Yes (Disabling)
  Sender: FDA-Public Use
  Company Number: GB-PFIZER INC-2010178955

PATIENT
  Age: 70 Year
  Sex: Female

DRUGS (8)
  1. CYCLOPHOSPHAMIDE [Suspect]
  2. EPIRUBICIN HYDROCHLORIDE [Suspect]
  3. FLUOROURACIL [Suspect]
  4. DOCETAXEL [Suspect]
     Dosage: 100 MG/M2, UNK
     Route: 042
     Dates: start: 20101020, end: 20101020
  5. ACETAMINOPHEN [Concomitant]
  6. CO-CODAMOL [Concomitant]
  7. E.45 [Concomitant]
  8. OMEPRAZOLE [Concomitant]
     Dosage: 20 MG, 1X/DAY
     Route: 048

REACTIONS (1)
  - PALMAR-PLANTAR ERYTHRODYSAESTHESIA SYNDROME [None]
